FAERS Safety Report 4842585-7 (Version None)
Quarter: 2005Q4

REPORT INFORMATION
  Report Type: 
  Country: None (occurrence: None)
  Receive Date: 20051201
  Receipt Date: 20051110
  Transmission Date: 20060501
  Serious: Yes (Hospitalization)
  Sender: FDA-Public Use
  Company Number: US-GLAXOSMITHKLINE-A0581809A

PATIENT
  Age: 66 Year
  Sex: Female

DRUGS (3)
  1. COREG [Suspect]
     Indication: HYPERTENSION
     Dosage: 6.25MG TWICE PER DAY
     Route: 048
  2. PAIN MEDICATION [Suspect]
  3. UNSPECIFIED MEDICATION [Concomitant]

REACTIONS (5)
  - CYSTITIS [None]
  - FALL [None]
  - ILL-DEFINED DISORDER [None]
  - KIDNEY INFECTION [None]
  - MYOCARDIAL INFARCTION [None]
